FAERS Safety Report 18570859 (Version 1)
Quarter: 2020Q4

REPORT INFORMATION
  Report Type: Spontaneous
  Country: DE (occurrence: DE)
  Receive Date: 20201202
  Receipt Date: 20201202
  Transmission Date: 20210114
  Serious: Yes (Life-Threatening)
  Sender: FDA-Public Use
  Company Number: DE-ANIPHARMA-2020-DE-000301

PATIENT
  Age: 78 Year
  Sex: Male

DRUGS (25)
  1. CANDESARTAN CILEXETIL. [Suspect]
     Active Substance: CANDESARTAN CILEXETIL
     Indication: HYPERTENSION
     Dosage: 16 MG BID
     Route: 048
     Dates: start: 2010
  2. CARVEDILOL. [Concomitant]
     Active Substance: CARVEDILOL
     Dosage: 12.5 MG BID
     Route: 065
  3. REPAGLINIDE. [Concomitant]
     Active Substance: REPAGLINIDE
     Dosage: 1 MG WITH MEALS / DOSE TEXT: 0.5 - 2 MG WITH MEALS
     Route: 065
     Dates: start: 2010, end: 2010
  4. ACARBOSE. [Concomitant]
     Active Substance: ACARBOSE
     Dosage: 50 MG WITH MEALS
     Route: 065
     Dates: start: 2010
  5. ESOMEPRAZOLE. [Concomitant]
     Active Substance: ESOMEPRAZOLE MAGNESIUM
     Dosage: 40 MG DAILY
     Route: 065
  6. FINASTERIDE. [Concomitant]
     Active Substance: FINASTERIDE
     Dosage: 5 MG 1-0-0
     Route: 065
  7. IBUPROFEN. [Concomitant]
     Active Substance: IBUPROFEN
     Route: 065
     Dates: start: 201510
  8. LANTUS [Concomitant]
     Active Substance: INSULIN GLARGINE
     Dosage: 20 TO 40 IU IN THE EVENING
     Route: 065
     Dates: start: 2010
  9. TRULICITY [Concomitant]
     Active Substance: DULAGLUTIDE
     Dosage: 1.5 MG WEEK
     Route: 065
     Dates: start: 2016
  10. TESTOSTERONE UNDECANOATE. [Concomitant]
     Active Substance: TESTOSTERONE UNDECANOATE
     Dosage: 1000 MG EVERY TWELVE WEEKS
     Route: 030
  11. SYMBICORT [Suspect]
     Active Substance: BUDESONIDE\FORMOTEROL FUMARATE DIHYDRATE
     Dosage: 320/9 UG DAILY
     Route: 055
  12. DAXAS [Suspect]
     Active Substance: ROFLUMILAST
     Dosage: 500 UG DAILY
     Route: 048
  13. INSULIN LISPRO GENETICAL RECOMBINATION [Concomitant]
     Dosage: 50 MG WITH MEALS
     Dates: start: 2010
  14. TAMSULOSIN [Concomitant]
     Active Substance: TAMSULOSIN
     Dosage: 0.4 MG 1-0-0
     Route: 065
  15. AMLODIPINE [Concomitant]
     Active Substance: AMLODIPINE BESYLATE
     Dosage: 5 MG, 1-0-1
     Route: 065
  16. ACE INHIBITOR, PLAIN [Concomitant]
     Active Substance: UNSPECIFIED INGREDIENT
     Dosage: 100 MG
     Route: 065
  17. DAPAGLIFLOZIN. [Suspect]
     Active Substance: DAPAGLIFLOZIN
     Dosage: 10 MG UNK
     Route: 048
     Dates: start: 201212
  18. ZOPICLONE [Concomitant]
     Active Substance: ZOPICLONE
     Dosage: 7.5 MG PRN
     Route: 065
  19. METFORMIN [Concomitant]
     Active Substance: METFORMIN HYDROCHLORIDE
     Dosage: 1000 MG, 1-0-1
     Route: 065
     Dates: start: 2010
  20. CLOPIDOGREL [Concomitant]
     Active Substance: CLOPIDOGREL BISULFATE
     Dosage: 75 MG DAILY
     Route: 065
  21. EZETROL [Concomitant]
     Active Substance: EZETIMIBE
     Dosage: DAILY
     Route: 065
  22. GLIMEPIRIDE. [Concomitant]
     Active Substance: GLIMEPIRIDE
     Dosage: 4 MG IN THE MORNING
     Route: 065
     Dates: start: 2010
  23. TORASEMIDE [Concomitant]
     Active Substance: TORSEMIDE
     Dosage: 10 MG DAILY
     Route: 065
  24. SPIRIVA [Concomitant]
     Active Substance: TIOTROPIUM BROMIDE MONOHYDRATE
     Dosage: 18 UG BID
     Route: 065
  25. ATORVASTATIN [Concomitant]
     Active Substance: ATORVASTATIN
     Dosage: 40 MG DAILY
     Route: 065

REACTIONS (16)
  - Haematoma [Unknown]
  - Cough [Unknown]
  - Hypoglycaemia [Unknown]
  - Chronic kidney disease [Unknown]
  - Right ventricular failure [Unknown]
  - Aortic valve incompetence [Unknown]
  - Tricuspid valve incompetence [Unknown]
  - Neuropathy peripheral [Unknown]
  - Vascular stent thrombosis [Unknown]
  - Acute myocardial infarction [Unknown]
  - Hepatotoxicity [Unknown]
  - Polyneuropathy [Unknown]
  - Dyslipidaemia [Unknown]
  - Weight decreased [Unknown]
  - Diastolic dysfunction [Unknown]
  - Pulmonary congestion [Unknown]

NARRATIVE: CASE EVENT DATE: 2010
